FAERS Safety Report 6857723-4 (Version None)
Quarter: 2010Q3

REPORT INFORMATION
  Report Type: 
  Country: None (occurrence: None)
  Receive Date: 20100719
  Receipt Date: 20080128
  Transmission Date: 20110219
  Serious: No
  Sender: FDA-Public Use
  Company Number: US-PFIZER INC-2008009296

PATIENT
  Sex: Female
  Weight: 61.4 kg

DRUGS (3)
  1. CHANTIX [Suspect]
     Indication: SMOKING CESSATION THERAPY
     Dates: start: 20080114
  2. SEROQUEL [Concomitant]
  3. PROZAC [Concomitant]

REACTIONS (6)
  - ABDOMINAL DISCOMFORT [None]
  - ABDOMINAL PAIN UPPER [None]
  - DRUG DOSE OMISSION [None]
  - DRUG INTOLERANCE [None]
  - GASTRIC ULCER [None]
  - NAUSEA [None]
